FAERS Safety Report 18049472 (Version 1)
Quarter: 2020Q3

REPORT INFORMATION
  Report Type: Spontaneous
  Country: US (occurrence: US)
  Receive Date: 20200721
  Receipt Date: 20200721
  Transmission Date: 20201103
  Serious: No
  Sender: FDA-Public Use
  Company Number: US-SA-2020SA188287

PATIENT

DRUGS (7)
  1. VITAMIN D NOS [Concomitant]
     Active Substance: VITAMIN D NOS
  2. AUBAGIO [Suspect]
     Active Substance: TERIFLUNOMIDE
     Indication: MULTIPLE SCLEROSIS
     Dosage: 14 MG, QD
     Route: 048
     Dates: start: 2016
  3. CALCIUM [Concomitant]
     Active Substance: CALCIUM
  4. ABILIFY [Concomitant]
     Active Substance: ARIPIPRAZOLE
  5. NUVIGIL [Concomitant]
     Active Substance: ARMODAFINIL
  6. VITAMIN B12 [Concomitant]
     Active Substance: CYANOCOBALAMIN
  7. EFFEXOR [Concomitant]
     Active Substance: VENLAFAXINE HYDROCHLORIDE

REACTIONS (1)
  - Alopecia [Unknown]
